FAERS Safety Report 8490490-X (Version None)
Quarter: 2012Q3

REPORT INFORMATION
  Report Type: 
  Country: None (occurrence: None)
  Receive Date: 20120705
  Receipt Date: 20120625
  Transmission Date: 20120928
  Serious: Yes (Hospitalization)
  Sender: FDA-Public Use
  Company Number: FR-CELGENEUS-056-C5013-12012803

PATIENT
  Sex: Male
  Weight: 78 kg

DRUGS (11)
  1. ASPIRIN [Concomitant]
     Indication: CHEST PAIN
     Dosage: 75
     Route: 065
     Dates: start: 20090810
  2. AMLODIPINE [Concomitant]
     Dosage: 10
     Route: 065
     Dates: start: 20090810
  3. FLUINDIONE [Concomitant]
     Dosage: 10 MILLIGRAM
     Route: 065
     Dates: start: 20100412
  4. VITAMIN K INHIBITOR [Concomitant]
     Indication: ATRIAL FIBRILLATION
     Route: 065
  5. DEXAMETHASONE SODIUM PHOSPHATE [Suspect]
     Dosage: 20 MILLIGRAM
     Route: 065
     Dates: start: 20120117, end: 20120121
  6. PENTOXIFYLLINE [Concomitant]
     Dosage: 20 MILLIGRAM
     Route: 065
  7. LENALIDOMIDE [Suspect]
     Dosage: 15 MILLIGRAM
     Route: 048
     Dates: start: 20120117, end: 20120121
  8. SIMVASTATIN [Concomitant]
     Dosage: 20
     Route: 065
     Dates: start: 20090922
  9. DEXAMETHASONE SODIUM PHOSPHATE [Suspect]
     Indication: MULTIPLE MYELOMA
     Dosage: 20 MILLIGRAM
     Route: 065
     Dates: start: 20090901
  10. ATENOLOL [Concomitant]
     Indication: BRADYCARDIA
     Dosage: 25 MILLIGRAM
     Route: 065
     Dates: start: 20100315
  11. LENALIDOMIDE [Suspect]
     Indication: MULTIPLE MYELOMA
     Dosage: 10 MILLIGRAM
     Route: 048
     Dates: start: 20090901

REACTIONS (1)
  - PERIORBITAL ABSCESS [None]
